FAERS Safety Report 15182830 (Version 2)
Quarter: 2018Q3

REPORT INFORMATION
  Report Type: Spontaneous
  Country: US (occurrence: US)
  Receive Date: 20180723
  Receipt Date: 20180726
  Transmission Date: 20181010
  Serious: Yes (Other)
  Sender: FDA-Public Use
  Company Number: US-PFIZER INC-2018293439

PATIENT
  Age: 83 Year
  Sex: Female
  Weight: 74.84 kg

DRUGS (2)
  1. LYRICA [Suspect]
     Active Substance: PREGABALIN
     Dosage: 25 MG, 1X/DAY (AT BEDTIME)
     Route: 048
  2. LYRICA [Suspect]
     Active Substance: PREGABALIN
     Indication: NEUROPATHY PERIPHERAL
     Dosage: UNK
     Dates: start: 2008

REACTIONS (7)
  - Vision blurred [Unknown]
  - Depression [Unknown]
  - Movement disorder [Unknown]
  - Cataract [Unknown]
  - Fatigue [Unknown]
  - Dizziness [Unknown]
  - Expired product administered [Unknown]
